FAERS Safety Report 20075211 (Version 1)
Quarter: 2021Q4

REPORT INFORMATION
  Report Type: Spontaneous
  Country: None (occurrence: US)
  Receive Date: 20211116
  Receipt Date: 20211116
  Transmission Date: 20220303
  Serious: Yes (Hospitalization, Other)
  Sender: FDA-Public Use
  Company Number: US-Avion Pharmaceuticals, LLC-2121714

PATIENT
  Age: 32 Year
  Sex: Male

DRUGS (1)
  1. GLOPERBA [Suspect]
     Active Substance: COLCHICINE
     Indication: Product used for unknown indication
     Route: 048

REACTIONS (15)
  - Multiple organ dysfunction syndrome [Unknown]
  - Pancytopenia [Unknown]
  - Neutropenia [Unknown]
  - Disseminated intravascular coagulation [Unknown]
  - Mouth haemorrhage [Unknown]
  - Acute hepatic failure [Unknown]
  - Acute kidney injury [Unknown]
  - Rhabdomyolysis [Unknown]
  - Troponin increased [Unknown]
  - Lactic acidosis [Unknown]
  - Hyperkalaemia [Unknown]
  - Hyperphosphataemia [Unknown]
  - Hypocalcaemia [Unknown]
  - Hypomagnesaemia [Unknown]
  - Hypoglycaemia [Unknown]
